FAERS Safety Report 9271257 (Version 1)
Quarter: 2013Q2

REPORT INFORMATION
  Report Type: Spontaneous
  Country: KR (occurrence: KR)
  Receive Date: 20130506
  Receipt Date: 20130506
  Transmission Date: 20140414
  Serious: Yes (Hospitalization)
  Sender: FDA-Public Use
  Company Number: KR-JNJFOC-20130416229

PATIENT
  Age: 10 Month
  Sex: Female
  Weight: 12 kg

DRUGS (2)
  1. CHILDRENS TYLENOL [Suspect]
     Indication: PYREXIA
     Dosage: 4-5 TIMES AT AN INTERVAL OF 5-6 HOURS
     Route: 048
     Dates: start: 20130403, end: 20130418
  2. BRUFEN [Concomitant]
     Route: 048
     Dates: start: 20130416

REACTIONS (7)
  - Pyrexia [Unknown]
  - Urticaria [Not Recovered/Not Resolved]
  - Rash [Not Recovered/Not Resolved]
  - Skin exfoliation [Not Recovered/Not Resolved]
  - Hypersomnia [Unknown]
  - Vision blurred [Unknown]
  - Drug ineffective [Unknown]
